FAERS Safety Report 23937757 (Version 3)
Quarter: 2024Q3

REPORT INFORMATION
  Report Type: Spontaneous
  Country: US (occurrence: US)
  Receive Date: 20240604
  Receipt Date: 20240731
  Transmission Date: 20241017
  Serious: No
  Sender: BRISTOL MYERS SQUIBB
  Company Number: US-BRISTOL-MYERS SQUIBB COMPANY-2024-088051

PATIENT
  Age: 74 Year
  Sex: Female
  Weight: 64.86 kg

DRUGS (1)
  1. REVLIMID [Suspect]
     Active Substance: LENALIDOMIDE
     Indication: Plasma cell myeloma
     Route: 048
     Dates: start: 20240401

REACTIONS (8)
  - Fatigue [Unknown]
  - Dyspnoea [Unknown]
  - Off label use [Unknown]
  - Nausea [Unknown]
  - Insomnia [Unknown]
  - Pruritus [Unknown]
  - Vomiting [Unknown]
  - Peripheral swelling [Unknown]
